FAERS Safety Report 9765371 (Version 2)
Quarter: 2014Q1

REPORT INFORMATION
  Report Type: Spontaneous
  Country: US (occurrence: US)
  Receive Date: 20131217
  Receipt Date: 20140218
  Transmission Date: 20141002
  Serious: No
  Sender: FDA-Public Use
  Company Number: US-BIOGENIDEC-2013BI115323

PATIENT
  Age: 46 Year
  Sex: Female

DRUGS (1)
  1. TECFIDERA [Suspect]
     Indication: MULTIPLE SCLEROSIS
     Route: 048
     Dates: start: 201310

REACTIONS (6)
  - Swollen tongue [Unknown]
  - Paraesthesia oral [Unknown]
  - Palpitations [Unknown]
  - Dyspnoea [Unknown]
  - Paraesthesia [Unknown]
  - Flushing [Not Recovered/Not Resolved]
